FAERS Safety Report 4465021-1 (Version None)
Quarter: 2004Q4

REPORT INFORMATION
  Report Type: 
  Country: None (occurrence: None)
  Receive Date: 20041004
  Receipt Date: 20040817
  Transmission Date: 20050328
  Serious: Yes (Other)
  Sender: FDA-Public Use
  Company Number: DE-ROCHE-377853

PATIENT
  Sex: Male
  Weight: 93 kg

DRUGS (2)
  1. XENICAL [Suspect]
     Indication: OBESITY
     Route: 048
     Dates: start: 20040515, end: 20040806
  2. XENICAL [Suspect]
     Route: 048
     Dates: start: 20040807

REACTIONS (4)
  - DIARRHOEA [None]
  - EPIGASTRIC DISCOMFORT [None]
  - FAECES DISCOLOURED [None]
  - TRANSAMINASES INCREASED [None]
